FAERS Safety Report 10767426 (Version 2)
Quarter: 2015Q1

REPORT INFORMATION
  Report Type: Spontaneous
  Country: US (occurrence: US)
  Receive Date: 20150205
  Receipt Date: 20150310
  Transmission Date: 20150721
  Serious: Yes (Hospitalization, Other)
  Sender: FDA-Public Use
  Company Number: US-UNITED THERAPEUTICS-UNT-2015-001109

PATIENT
  Sex: Male

DRUGS (2)
  1. ORENITRAM [Suspect]
     Active Substance: TREPROSTINIL
     Dosage: 0.25 MG, BID
     Route: 048
     Dates: start: 20150127
  2. ORENITRAM [Suspect]
     Active Substance: TREPROSTINIL
     Indication: PULMONARY ARTERIAL HYPERTENSION
     Dosage: 8.25 MG, TID
     Route: 048
     Dates: start: 20141106

REACTIONS (5)
  - Weight increased [Unknown]
  - Oedema [Unknown]
  - Hepatic enzyme increased [Recovered/Resolved]
  - Abdominal pain [Recovered/Resolved]
  - Localised oedema [Unknown]

NARRATIVE: CASE EVENT DATE: 20150128
